FAERS Safety Report 17216946 (Version 1)
Quarter: 2019Q4

REPORT INFORMATION
  Report Type: Spontaneous
  Country: FR (occurrence: FR)
  Receive Date: 20191231
  Receipt Date: 20191231
  Transmission Date: 20200122
  Serious: Yes (Hospitalization)
  Sender: FDA-Public Use
  Company Number: FR-SUN PHARMACEUTICAL INDUSTRIES LTD-2019RR-232023

PATIENT
  Age: 50 Year
  Sex: Male

DRUGS (2)
  1. CODEINE [Suspect]
     Active Substance: CODEINE
     Indication: PAIN
     Dosage: POSOLOGIE INCONNUE ()
     Route: 048
     Dates: start: 20191019, end: 20191020
  2. IBUPROFEN. [Suspect]
     Active Substance: IBUPROFEN
     Indication: PAIN
     Dosage: POSOLOGIE INCONNUE MAIS FORTES DOSES ()
     Route: 048
     Dates: start: 20191016, end: 20191020

REACTIONS (1)
  - Spinal cord infection [Recovering/Resolving]

NARRATIVE: CASE EVENT DATE: 20191024
